FAERS Safety Report 18616126 (Version 2)
Quarter: 2020Q4

REPORT INFORMATION
  Report Type: Spontaneous
  Country: US (occurrence: US)
  Receive Date: 20201214
  Receipt Date: 20201216
  Transmission Date: 20210114
  Serious: No
  Sender: FDA-Public Use
  Company Number: US-SA-2020SA355031

PATIENT

DRUGS (1)
  1. LANTUS SOLOSTAR [Suspect]
     Active Substance: INSULIN GLARGINE
     Indication: TYPE 1 DIABETES MELLITUS
     Dosage: 8-10 UNITS EACH NIGHT DEPENDING ON HIS BLOOD SUGARS
     Route: 065

REACTIONS (5)
  - Blood glucose increased [Unknown]
  - Device operational issue [Unknown]
  - Muscular weakness [Unknown]
  - Visual impairment [Unknown]
  - Extra dose administered [Unknown]
